FAERS Safety Report 20712811 (Version 2)
Quarter: 2022Q2

REPORT INFORMATION
  Report Type: Spontaneous
  Country: GB (occurrence: GB)
  Receive Date: 20220415
  Receipt Date: 20220421
  Transmission Date: 20220721
  Serious: Yes (Other)
  Sender: FDA-Public Use
  Company Number: GB-ENDO PHARMACEUTICALS INC-2022-002555

PATIENT
  Age: 58 Year
  Sex: Female
  Weight: 87 kg

DRUGS (8)
  1. TESTIM [Suspect]
     Active Substance: TESTOSTERONE
     Indication: Product used for unknown indication
     Dosage: 10 MG, UNKNOWN
     Route: 061
  2. ATORVASTATIN [Concomitant]
     Active Substance: ATORVASTATIN
     Indication: Product used for unknown indication
     Dosage: 1 DF, DAILY
     Route: 065
     Dates: start: 20210216
  3. ESTRADIOL [Concomitant]
     Active Substance: ESTRADIOL
     Indication: Product used for unknown indication
     Dosage: 4 DF, WEEKLY
     Route: 065
     Dates: start: 20210216
  4. MIRTAZAPINE [Concomitant]
     Active Substance: MIRTAZAPINE
     Indication: Product used for unknown indication
     Dosage: 1 DF, DAILY (AT NIGHT)
     Route: 065
     Dates: start: 20210216
  5. PRIADEL                            /00033702/ [Concomitant]
     Indication: Product used for unknown indication
     Dosage: 1.5 DF, DAILY
     Route: 065
     Dates: start: 20210216
  6. RAMIPRIL [Concomitant]
     Active Substance: RAMIPRIL
     Indication: Product used for unknown indication
     Dosage: 1 DF, DAILY
     Route: 065
     Dates: start: 20210216
  7. UTROGESTAN [Concomitant]
     Active Substance: PROGESTERONE
     Indication: Product used for unknown indication
     Dosage: 1 DF, UNKNOWN (EVERY TWO DAYS AT NIGHT CONTINUOUSLY)
     Route: 065
     Dates: start: 20210216
  8. VENLAFAXINE HYDROCHLORIDE [Concomitant]
     Active Substance: VENLAFAXINE HYDROCHLORIDE
     Indication: Product used for unknown indication
     Dosage: 2 DF, DAILY
     Route: 065
     Dates: start: 20210216

REACTIONS (3)
  - Psychotic disorder [Unknown]
  - Aggression [Recovered/Resolved]
  - Off label use [Unknown]
